FAERS Safety Report 25766582 (Version 1)
Quarter: 2025Q3

REPORT INFORMATION
  Report Type: Spontaneous
  Country: US (occurrence: None)
  Receive Date: 20250905
  Receipt Date: 20250905
  Transmission Date: 20251020
  Serious: Yes (Hospitalization)
  Sender: FDA-CTU
  Company Number: None

PATIENT
  Age: 8 Year
  Sex: Male
  Weight: 33.3 kg

DRUGS (4)
  1. CARBOPLATIN [Suspect]
     Active Substance: CARBOPLATIN
     Dates: start: 20250713
  2. ETOPOSIDE [Suspect]
     Active Substance: ETOPOSIDE
     Dates: start: 20250714
  3. FILGRASTIM [Suspect]
     Active Substance: FILGRASTIM
     Dates: start: 20250808
  4. MELPHALAN [Suspect]
     Active Substance: MELPHALAN
     Dates: start: 20250712

REACTIONS (11)
  - Oxygen consumption increased [None]
  - Pulmonary oedema [None]
  - Rhinovirus infection [None]
  - Lung opacity [None]
  - Pulmonary septal thickening [None]
  - Pulmonary fibrosis [None]
  - Pulmonary hypertension [None]
  - Renal impairment [None]
  - Hypervolaemia [None]
  - Hypercapnia [None]
  - Transplantation complication [None]

NARRATIVE: CASE EVENT DATE: 20250814
